FAERS Safety Report 9060672 (Version 1)
Quarter: 2013Q1

REPORT INFORMATION
  Report Type: Report from Study
  Country: CA (occurrence: CA)
  Receive Date: 20130204
  Receipt Date: 20130204
  Transmission Date: 20140127
  Serious: Yes (Other)
  Sender: FDA-Public Use
  Company Number: CA-ROCHE-1185883

PATIENT
  Sex: Male
  Weight: 73 kg

DRUGS (5)
  1. AVASTIN [Suspect]
     Indication: LUNG CANCER METASTATIC
     Route: 042
     Dates: start: 20110802, end: 20121231
  2. AVASTIN [Suspect]
     Route: 042
     Dates: end: 20130118
  3. ZOPICLONE [Concomitant]
     Route: 065
  4. FOLIC ACID [Concomitant]
     Route: 065
  5. WARFARIN [Concomitant]
     Indication: DEEP VEIN THROMBOSIS
     Route: 065

REACTIONS (2)
  - Lung neoplasm [Unknown]
  - Neoplasm [Unknown]
